FAERS Safety Report 5900359-X (Version None)
Quarter: 2008Q3

REPORT INFORMATION
  Report Type: 
  Country: None (occurrence: None)
  Receive Date: 20080926
  Receipt Date: 20080311
  Transmission Date: 20090109
  Serious: Yes (Other)
  Sender: FDA-Public Use
  Company Number: US-PFIZER INC-2008023607

PATIENT
  Sex: Female
  Weight: 70.8 kg

DRUGS (9)
  1. DILANTIN [Suspect]
     Indication: CONVULSION
     Dates: start: 19570101
  2. DILANTIN [Suspect]
     Indication: EPILEPSY
  3. DILANTIN [Suspect]
     Indication: EPILEPSY
  4. PHENOBARBITAL TAB [Concomitant]
  5. TEGRETOL [Concomitant]
     Dosage: TEXT:900 MG PER DAY
  6. XALATAN [Concomitant]
     Indication: GLAUCOMA
  7. LISINOPRIL [Concomitant]
  8. CYTOMEL [Concomitant]
  9. MULTI-VITAMINS [Concomitant]

REACTIONS (5)
  - ABDOMINAL PAIN [None]
  - AMENORRHOEA [None]
  - BREAST CANCER [None]
  - DRUG INTOLERANCE [None]
  - GLAUCOMA [None]
